FAERS Safety Report 10228342 (Version 1)
Quarter: 2014Q2

REPORT INFORMATION
  Report Type: Spontaneous
  Country: US (occurrence: None)
  Receive Date: 20140505
  Receipt Date: 20140505
  Transmission Date: 20141212
  Serious: No
  Sender: FDA-Public Use
  Company Number: US-014626

PATIENT
  Age: 62 Year
  Sex: Male
  Weight: 83.92 kg

DRUGS (3)
  1. PICO-SALAX (NOT SPECIFIED) [Suspect]
     Indication: BOWEL PREPARATION
     Dosage: 6PM ON 04FEB14; 5:30AM ON 05FEB2014
     Dates: start: 20140204, end: 20140205
  2. PREVACID [Concomitant]
  3. ISOXSUPREINE [Concomitant]

REACTIONS (1)
  - Drug ineffective [None]
